FAERS Safety Report 8903729 (Version 1)
Quarter: 2012Q4

REPORT INFORMATION
  Report Type: 
  Country: US (occurrence: US)
  Receive Date: 20121113
  Receipt Date: 20121113
  Transmission Date: 20130627
  Serious: Yes (Death, Life-Threatening, Hospitalization, Other)
  Sender: FDA-Public Use
  Company Number: US-BAYER-2012-118308

PATIENT
  Age: 68 Year
  Sex: Male
  Weight: 80 kg

DRUGS (23)
  1. TRASYLOL [Suspect]
     Indication: CORONARY ARTERY BYPASS GRAFT
     Dosage: UNK
     Dates: start: 20050808
  2. TRASYLOL [Suspect]
     Indication: ANEURYSMECTOMY
  3. DARVOCET [Concomitant]
     Dosage: 1-2 every four hours
     Route: 048
     Dates: start: 20050726
  4. DIGOXIN [Concomitant]
     Dosage: 0.25 mg, QD
     Route: 048
  5. COUMADIN [Concomitant]
  6. ZANTAC [Concomitant]
     Dosage: 75 mg, QD
     Route: 048
  7. ACETYLSALICYLIC ACID (} 100 MG) [Concomitant]
     Dosage: UNK UNK, QD
     Route: 048
  8. PLAVIX [Concomitant]
     Dosage: 75 mg, QD
     Route: 048
  9. LOPID [Concomitant]
     Dosage: 600 mg, BID
     Route: 048
  10. ATENOLOL [Concomitant]
     Dosage: 50 mg, QD
     Route: 048
  11. PLENDIL [Concomitant]
     Dosage: 100 mg, BID
     Route: 048
  12. NITROGLYCERIN [Concomitant]
     Dosage: UNK UNK, TID
     Route: 048
  13. LOVENOX [Concomitant]
     Dosage: 60 mg, BID
     Route: 058
     Dates: start: 200507
  14. ACCUPRIL [Concomitant]
     Dosage: 10 mg, BID
     Route: 048
  15. ISOFLURANE [Concomitant]
     Dosage: UNK
     Dates: start: 20050808, end: 20050808
  16. FENTANYL [Concomitant]
     Dosage: UNK
     Dates: start: 20050808, end: 20050808
  17. PANCURONIUM [Concomitant]
     Dosage: UNK
     Dates: start: 20050808, end: 20050808
  18. MIDAZOLAM [Concomitant]
     Dosage: UNK
     Dates: start: 20050808, end: 20050808
  19. EPINEPHRINE [Concomitant]
     Dosage: UNK
     Dates: start: 20050808
  20. MILRINONE [Concomitant]
     Dosage: UNK
     Dates: start: 20050808
  21. INSULIN [Concomitant]
     Dosage: UNK
     Dates: start: 20050808, end: 20050808
  22. HEPARIN [Concomitant]
     Dosage: UNK
     Dates: start: 20050808, end: 20050808
  23. MANNITOL [Concomitant]
     Dosage: UNK
     Dates: start: 20050808, end: 20050808

REACTIONS (6)
  - Death [Fatal]
  - Cardiac failure congestive [None]
  - Renal failure acute [None]
  - Gastrointestinal necrosis [None]
  - Sepsis [None]
  - Ischaemic hepatitis [None]
